FAERS Safety Report 7680751-6 (Version None)
Quarter: 2011Q3

REPORT INFORMATION
  Report Type: 
  Country: None (occurrence: None)
  Receive Date: 20110812
  Receipt Date: 20110802
  Transmission Date: 20111222
  Serious: Yes (Other)
  Sender: FDA-Public Use
  Company Number: US-MYLANLABS-2011S1016027

PATIENT
  Age: 44 Year
  Sex: Female
  Weight: 68.04 kg

DRUGS (8)
  1. FENTANYL-100 [Suspect]
     Indication: FIBROMYALGIA
     Dosage: Q 48 HOURS
     Route: 062
     Dates: start: 20080101, end: 20110720
  2. FENTANYL-100 [Suspect]
     Dosage: Q 48 HRS
     Route: 062
     Dates: start: 20110720, end: 20110720
  3. FENTANYL-100 [Suspect]
     Indication: PAIN
     Dosage: Q 48 HOURS
     Route: 062
     Dates: start: 20080101, end: 20110720
  4. FENTANYL-100 [Suspect]
     Dosage: Q 48 HOURS
     Route: 062
     Dates: start: 20110721
  5. NUVIGIL [Concomitant]
     Indication: NARCOLEPSY
     Route: 048
  6. FENTANYL-100 [Suspect]
     Dosage: Q 48 HRS
     Route: 062
     Dates: start: 20110720, end: 20110720
  7. NUCYNTA [Concomitant]
     Indication: BREAKTHROUGH PAIN
     Dosage: PRN
     Route: 048
  8. FENTANYL-100 [Suspect]
     Dosage: Q 48 HOURS
     Route: 062
     Dates: start: 20110721

REACTIONS (3)
  - ACCIDENTAL OVERDOSE [None]
  - INCORRECT DRUG ADMINISTRATION DURATION [None]
  - LOSS OF CONSCIOUSNESS [None]
